FAERS Safety Report 4650609-5 (Version None)
Quarter: 2005Q2

REPORT INFORMATION
  Report Type: 
  Country: None (occurrence: None)
  Receive Date: 20050503
  Receipt Date: 20050422
  Transmission Date: 20051028
  Serious: Yes (Hospitalization, Other)
  Sender: FDA-Public Use
  Company Number: US-JNJFOC-20050300647

PATIENT
  Sex: Male
  Weight: 77.11 kg

DRUGS (5)
  1. REMICADE [Suspect]
     Route: 042
  2. REMICADE [Suspect]
     Route: 042
  3. REMICADE [Suspect]
     Indication: RHEUMATOID ARTHRITIS
     Route: 042
  4. PREDNISONE [Concomitant]
  5. ARAVA [Concomitant]
     Dosage: LAST DOSE

REACTIONS (6)
  - ASTHENIA [None]
  - HEADACHE [None]
  - HYPERSOMNIA [None]
  - HYPERTENSION [None]
  - PULMONARY EMBOLISM [None]
  - TUBERCULOSIS OF CENTRAL NERVOUS SYSTEM [None]
